FAERS Safety Report 8616605-8 (Version None)
Quarter: 2012Q3

REPORT INFORMATION
  Report Type: 
  Country: None (occurrence: None)
  Receive Date: 20120823
  Receipt Date: 20120820
  Transmission Date: 20120928
  Serious: Yes (Other)
  Sender: FDA-Public Use
  Company Number: US-TEVA-355112USA

PATIENT
  Age: 55 Year
  Sex: Female

DRUGS (11)
  1. ROPIVACAINE HYDROCHLORIDE [Concomitant]
     Indication: CANCER PAIN
     Dosage: BOLUS OF 0.5%
     Route: 065
  2. ROPIVACAINE HYDROCHLORIDE [Concomitant]
     Dosage: INFUSION OF 8 ML/HOUR OF 0.2%
     Route: 065
  3. MORPHINE [Suspect]
     Indication: CANCER PAIN
     Route: 042
  4. KETAMINE HCL [Concomitant]
     Indication: CANCER PAIN
     Route: 048
  5. MORPHINE [Suspect]
     Indication: BREAKTHROUGH PAIN
     Dosage: 40MG TOTAL DOSE ON DAY 2
     Route: 042
  6. TACROLIMUS [Suspect]
     Indication: IMMUNOSUPPRESSANT DRUG THERAPY
     Route: 065
  7. FENTANYL [Suspect]
     Dosage: 75 MICROG/H
     Route: 062
  8. HYDROCODONE BITARTRATE + ACETAMINOPHEN [Suspect]
     Indication: BREAKTHROUGH PAIN
     Dosage: 10/325MG; UP TO 6 TABLETS/DAY
     Route: 065
  9. DULOXETINE HYDROCHLORIDE [Concomitant]
     Indication: CANCER PAIN
     Dosage: 20MG DAILY
     Route: 065
  10. FENTANYL [Suspect]
     Indication: CANCER PAIN
     Dosage: 50 MICROG/H
     Route: 062
  11. METHADONE HYDROCHLORIDE [Suspect]
     Indication: CANCER PAIN
     Route: 048

REACTIONS (5)
  - DIABETES MELLITUS [None]
  - STUPOR [None]
  - MENTAL STATUS CHANGES [None]
  - DELIRIUM [None]
  - RENAL FAILURE CHRONIC [None]
